FAERS Safety Report 12076464 (Version 8)
Quarter: 2020Q1

REPORT INFORMATION
  Report Type: Report from Study
  Country: CA (occurrence: CA)
  Receive Date: 20160215
  Receipt Date: 20200320
  Transmission Date: 20200409
  Serious: Yes (Hospitalization, Other)
  Sender: FDA-Public Use
  Company Number: CA-ROCHE-1467173

PATIENT
  Age: 34 Year
  Sex: Male

DRUGS (8)
  1. PREDNISONE. [Concomitant]
     Active Substance: PREDNISONE
  2. CYMBALTA [Concomitant]
     Active Substance: DULOXETINE HYDROCHLORIDE
  3. METHYLPREDNISOLONE. [Concomitant]
     Active Substance: METHYLPREDNISOLONE
     Indication: PREMEDICATION
     Route: 042
     Dates: start: 20140924
  4. DIPHENHYDRAMINE HCL [Concomitant]
     Active Substance: DIPHENHYDRAMINE HYDROCHLORIDE
     Indication: PREMEDICATION
     Route: 048
     Dates: start: 20140924
  5. RITUXAN [Suspect]
     Active Substance: RITUXIMAB
     Indication: GRANULOMATOSIS WITH POLYANGIITIS
     Dosage: 07/OCT/2014: LAST INFUSION
     Route: 042
     Dates: start: 20140924
  6. HYDROMORPHONE [Concomitant]
     Active Substance: HYDROMORPHONE
  7. RITUXAN [Suspect]
     Active Substance: RITUXIMAB
     Dosage: SINGLE DOSE, EVERY 6 MONTHS
     Route: 042
     Dates: start: 20180829
  8. ACETAMINOPHEN. [Concomitant]
     Active Substance: ACETAMINOPHEN
     Indication: PREMEDICATION
     Route: 048
     Dates: start: 20140924

REACTIONS (43)
  - Eye swelling [Recovered/Resolved]
  - Computerised tomogram abnormal [Unknown]
  - Sinus disorder [Unknown]
  - Drug ineffective [Unknown]
  - Facial pain [Recovered/Resolved]
  - Nasal crusting [Unknown]
  - Headache [Unknown]
  - Antineutrophil cytoplasmic antibody positive [Unknown]
  - Condition aggravated [Not Recovered/Not Resolved]
  - Oropharyngeal pain [Unknown]
  - Protein urine present [Unknown]
  - Disorder of orbit [Unknown]
  - Ill-defined disorder [Unknown]
  - Rhinalgia [Unknown]
  - Increased viscosity of upper respiratory secretion [Unknown]
  - Blood triglycerides increased [Unknown]
  - Nervous system disorder [Unknown]
  - Blood uric acid decreased [Unknown]
  - Blood cholesterol increased [Unknown]
  - Nose deformity [Unknown]
  - Malaise [Unknown]
  - Nasal congestion [Unknown]
  - Ear pain [Unknown]
  - Alanine aminotransferase increased [Unknown]
  - Monocyte count increased [Unknown]
  - Alpha 1 globulin increased [Unknown]
  - Pain [Unknown]
  - Hepatic enzyme increased [Unknown]
  - Sinus pain [Unknown]
  - Neutrophil count increased [Unknown]
  - Enzyme level increased [Unknown]
  - Infusion related reaction [Recovering/Resolving]
  - Liver function test abnormal [Not Recovered/Not Resolved]
  - Swelling of eyelid [Unknown]
  - White blood cell count increased [Unknown]
  - Ear disorder [Unknown]
  - Sinusitis [Unknown]
  - Eosinophil count increased [Unknown]
  - Blood urine present [Unknown]
  - Nasal septum perforation [Unknown]
  - Granulomatosis with polyangiitis [Not Recovered/Not Resolved]
  - C-reactive protein increased [Unknown]
  - Beta globulin increased [Unknown]

NARRATIVE: CASE EVENT DATE: 20140924
